FAERS Safety Report 6298301-8 (Version None)
Quarter: 2009Q3

REPORT INFORMATION
  Report Type: 
  Country: None (occurrence: None)
  Receive Date: 20090805
  Receipt Date: 20090723
  Transmission Date: 20100115
  Serious: Yes (Hospitalization)
  Sender: FDA-Public Use
  Company Number: FR-ASTRAZENECA-2009SE04960

PATIENT
  Age: 80 Year
  Sex: Female

DRUGS (12)
  1. ATACAND [Suspect]
     Route: 048
     Dates: end: 20090530
  2. DOLLPRANE [Suspect]
     Route: 048
     Dates: start: 20090509, end: 20090530
  3. ARICEPT [Suspect]
     Route: 048
     Dates: start: 20071001, end: 20090530
  4. CORDARONE [Suspect]
     Route: 048
     Dates: start: 20060101, end: 20090530
  5. ALDACTONE [Suspect]
     Route: 048
     Dates: end: 20090530
  6. SELOKEN [Concomitant]
     Route: 048
     Dates: start: 20081201
  7. BRISTOPEN [Concomitant]
     Indication: OSTEITIS
     Route: 048
     Dates: start: 20060101
  8. PYOSTACLNE [Concomitant]
     Indication: OSTEITIS
     Route: 048
     Dates: start: 20060101
  9. TRAMADOL HCL [Concomitant]
     Route: 048
     Dates: start: 20090509
  10. PREVISCAN [Concomitant]
     Route: 048
     Dates: start: 20081201
  11. ACTRAPID [Concomitant]
  12. LANTUS [Concomitant]

REACTIONS (1)
  - CYTOLYTIC HEPATITIS [None]
